FAERS Safety Report 5197409-8 (Version None)
Quarter: 2007Q1

REPORT INFORMATION
  Report Type: 
  Country: None (occurrence: None)
  Receive Date: 20070103
  Receipt Date: 20061228
  Transmission Date: 20070707
  Serious: Yes (Hospitalization)
  Sender: FDA-Public Use
  Company Number: US-SANOFI-SYNTHELABO-F01200602346

PATIENT
  Sex: Male
  Weight: 79.4 kg

DRUGS (6)
  1. RADIATION THERAPY [Suspect]
     Indication: OESOPHAGEAL CARCINOMA
     Dosage: 180 CGY/DAY MONDAY TO FRIDAY
     Route: 050
     Dates: start: 20061107, end: 20061110
  2. NEXIUM [Concomitant]
     Dosage: 20-40 MG
     Route: 048
  3. ZANTAC [Concomitant]
     Route: 048
  4. XELODA [Suspect]
     Dosage: MONDAY TO FRIDAY
     Route: 048
     Dates: start: 20061107, end: 20061109
  5. CETUXIMAB [Suspect]
     Route: 042
     Dates: start: 20061107, end: 20061107
  6. OXALIPLATIN [Suspect]
     Indication: OESOPHAGEAL CARCINOMA
     Route: 041
     Dates: start: 20061107, end: 20061107

REACTIONS (8)
  - DEHYDRATION [None]
  - DYSPHAGIA [None]
  - HYPOCALCAEMIA [None]
  - LYMPHOPENIA [None]
  - NAUSEA [None]
  - OESOPHAGEAL OBSTRUCTION [None]
  - OESOPHAGEAL OEDEMA [None]
  - VOMITING [None]
